FAERS Safety Report 18706557 (Version 1)
Quarter: 2021Q1

REPORT INFORMATION
  Report Type: Spontaneous
  Country: US (occurrence: US)
  Receive Date: 20210105
  Receipt Date: 20210105
  Transmission Date: 20210419
  Serious: Yes (Hospitalization)
  Sender: FDA-Public Use
  Company Number: None

PATIENT
  Age: 74 Year
  Sex: Female
  Weight: 77.11 kg

DRUGS (1)
  1. RIVAROXABAN (RIVAROXABAN 15MG TAB) [Suspect]
     Active Substance: RIVAROXABAN
     Indication: DEEP VEIN THROMBOSIS
     Route: 048
     Dates: start: 20180105, end: 20180118

REACTIONS (7)
  - Haematochezia [None]
  - Vision blurred [None]
  - Haemorrhage [None]
  - Anaemia [None]
  - Confusional state [None]
  - Hyperhidrosis [None]
  - Asthenia [None]

NARRATIVE: CASE EVENT DATE: 20180118
